FAERS Safety Report 4466393-4 (Version None)
Quarter: 2004Q3

REPORT INFORMATION
  Report Type: 
  Country: None (occurrence: None)
  Receive Date: 20040930
  Receipt Date: 20040917
  Transmission Date: 20050211
  Serious: Yes (Other)
  Sender: FDA-Public Use
  Company Number: 2004039295

PATIENT
  Sex: Female

DRUGS (3)
  1. NEURONTIN [Suspect]
     Indication: NEUROPATHY
     Dosage: 3600 MG, ORAL
     Route: 048
     Dates: start: 20040316
  2. NEURONTIN [Suspect]
     Indication: PAIN
     Dosage: 3600 MG, ORAL
     Route: 048
     Dates: start: 20040316
  3. NORTRIPTYLINE HYDROCHLORIDE [Concomitant]

REACTIONS (2)
  - LEUKOPENIA [None]
  - NEUTROPENIA [None]
